FAERS Safety Report 8084241-0 (Version None)
Quarter: 2012Q1

REPORT INFORMATION
  Report Type: 
  Country: None (occurrence: None)
  Receive Date: 20120128
  Receipt Date: 20110307
  Transmission Date: 20120608
  Serious: No
  Sender: FDA-Public Use
  Company Number: US-ABBOTT-11P-163-0709624-00

PATIENT
  Sex: Male
  Weight: 52.21 kg

DRUGS (4)
  1. HUMIRA [Suspect]
     Indication: PSORIASIS
     Route: 058
     Dates: start: 20090101, end: 20100101
  2. HUMIRA [Suspect]
     Route: 058
     Dates: start: 20100101
  3. METHOTREXATE [Concomitant]
     Indication: PSORIASIS
  4. FOLIC ACID [Concomitant]
     Indication: VITAMIN SUPPLEMENTATION

REACTIONS (3)
  - PSORIASIS [None]
  - ECCHYMOSIS [None]
  - PRURITUS [None]
